FAERS Safety Report 13858409 (Version 1)
Quarter: 2017Q3

REPORT INFORMATION
  Report Type: Spontaneous
  Country: US (occurrence: US)
  Receive Date: 20170810
  Receipt Date: 20170810
  Transmission Date: 20171127
  Serious: Yes (Disabling)
  Sender: FDA-Public Use
  Company Number: None

PATIENT
  Age: 49 Year
  Sex: Female
  Weight: 65.25 kg

DRUGS (9)
  1. HYDROCODON-ACETAMINOPHIN [Concomitant]
  2. CALCIUM [Concomitant]
     Active Substance: CALCIUM
  3. VITAMIN D [Concomitant]
     Active Substance: CHOLECALCIFEROL
  4. TAMOXIFEN [Concomitant]
     Active Substance: TAMOXIFEN
  5. KRILL OIL [Concomitant]
     Active Substance: DIETARY SUPPLEMENT
  6. MELOXICAM. [Concomitant]
     Active Substance: MELOXICAM
  7. XZANAX [Concomitant]
  8. VITAMIN B12 [Concomitant]
     Active Substance: CYANOCOBALAMIN
  9. PLEGRIDY [Suspect]
     Active Substance: PEGINTERFERON BETA-1A
     Indication: MULTIPLE SCLEROSIS
     Dosage: ?          QUANTITY:1 INJECTION(S);OTHER FREQUENCY:EVERY OTHER WEEK;?
     Route: 058
     Dates: start: 20170717, end: 20170731

REACTIONS (2)
  - Headache [None]
  - Pyrexia [None]

NARRATIVE: CASE EVENT DATE: 20170717
